FAERS Safety Report 19048096 (Version 2)
Quarter: 2021Q2

REPORT INFORMATION
  Report Type: Spontaneous
  Country: FR (occurrence: FR)
  Receive Date: 20210323
  Receipt Date: 20210408
  Transmission Date: 20210717
  Serious: Yes (Hospitalization, Other)
  Sender: FDA-Public Use
  Company Number: NVSC2021FR066554

PATIENT
  Age: 45 Year
  Sex: Male

DRUGS (12)
  1. ARGATROBAN. [Suspect]
     Active Substance: ARGATROBAN
     Indication: HEPARIN-INDUCED THROMBOCYTOPENIA
     Dosage: UNK, ANTI?IIA ACTIVITY BETWEEN 0.88 AND 1.08 ?G/ML
     Route: 065
  2. ARGATROBAN. [Interacting]
     Active Substance: ARGATROBAN
     Indication: PULMONARY EMBOLISM
     Dosage: INCREASED WITH TARGET ANTI?IIA OF 1.5 ?G/ML
     Route: 065
  3. ARGATROBAN. [Interacting]
     Active Substance: ARGATROBAN
     Dosage: UNK, DOSE INCREASED TO PREVIOUS ANTI?IIA TARGET
     Route: 065
  4. ARGATROBAN. [Interacting]
     Active Substance: ARGATROBAN
     Dosage: UNK
     Route: 065
  5. DABIGATRAN [Concomitant]
     Active Substance: DABIGATRAN
     Indication: ESSENTIAL THROMBOCYTHAEMIA
     Dosage: 150 MG, BID
     Route: 065
  6. WARFARIN [Interacting]
     Active Substance: WARFARIN
     Indication: PULMONARY EMBOLISM
     Dosage: UNK
     Route: 065
  7. ASPIRIN. [Concomitant]
     Active Substance: ASPIRIN
     Indication: ESSENTIAL THROMBOCYTHAEMIA
     Dosage: 160 MG, QD
     Route: 065
  8. ARGATROBAN. [Interacting]
     Active Substance: ARGATROBAN
     Dosage: UNK, DOSE REDUCED ON DAY 25
     Route: 065
  9. HEPARIN [Suspect]
     Active Substance: HEPARIN SODIUM
     Indication: PULMONARY EMBOLISM
     Route: 065
  10. ARGATROBAN. [Interacting]
     Active Substance: ARGATROBAN
     Dosage: UNK
     Route: 065
  11. ARGATROBAN. [Interacting]
     Active Substance: ARGATROBAN
     Dosage: UNK
     Route: 065
  12. VITAMIN K [Concomitant]
     Active Substance: PHYTONADIONE
     Indication: PRODUCT USED FOR UNKNOWN INDICATION
     Dosage: UNK
     Route: 048

REACTIONS (7)
  - Deep vein thrombosis [Recovered/Resolved]
  - Protein C decreased [Unknown]
  - Labelled drug-drug interaction medication error [Unknown]
  - Thrombophlebitis superficial [Recovered/Resolved]
  - Drug titration error [Unknown]
  - Skin necrosis [Recovered/Resolved]
  - Heparin-induced thrombocytopenia [Recovered/Resolved]
